FAERS Safety Report 15695915 (Version 1)
Quarter: 2018Q4

REPORT INFORMATION
  Report Type: Spontaneous
  Country: PL (occurrence: PL)
  Receive Date: 20181206
  Receipt Date: 20181206
  Transmission Date: 20190205
  Serious: Yes (Other)
  Sender: FDA-Public Use
  Company Number: PL-SHIRE-PL201846454

PATIENT

DRUGS (1)
  1. HUMAN ALBUMIN [Suspect]
     Active Substance: ALBUMIN HUMAN
     Indication: PROTEIN DEFICIENCY
     Dosage: UNK
     Route: 042
     Dates: start: 2012

REACTIONS (4)
  - Caesarean section [Not Recovered/Not Resolved]
  - Hypertension [Unknown]
  - Oedema [Unknown]
  - Term baby [Not Recovered/Not Resolved]

NARRATIVE: CASE EVENT DATE: 2012
